FAERS Safety Report 9410887 (Version 2)
Quarter: 2013Q3

REPORT INFORMATION
  Report Type: Report from Study
  Country: BR (occurrence: BR)
  Receive Date: 20130719
  Receipt Date: 20130820
  Transmission Date: 20140515
  Serious: Yes (Death, Hospitalization, Other)
  Sender: FDA-Public Use
  Company Number: PHHY2013BR076512

PATIENT
  Sex: Male
  Weight: 67 kg

DRUGS (8)
  1. BUFFERIN [Suspect]
     Indication: CARDIAC DISORDER
     Dosage: 1 DF DAILY
     Route: 048
     Dates: end: 20130610
  2. MONOCORDIL [Concomitant]
     Indication: CARDIAC DISORDER
     Dosage: 1 TABLET AT MORNING AND 2 TABLETS AT NIGHT
     Route: 048
  3. MONOCORDIL [Concomitant]
     Dosage: 1 DF, AT NIGHT
     Route: 048
  4. DIGOXIN [Concomitant]
     Indication: CARDIAC DISORDER
     Dosage: 0.5 DF, UNK
     Route: 048
  5. ENALAPRIL [Concomitant]
     Indication: BLOOD PRESSURE
     Dosage: 1 DF, EVERY 12 HOURS
     Route: 048
  6. FUROSEMIDE [Concomitant]
     Indication: BLOOD PRESSURE
     Dosage: 1 DF, DAILY
     Route: 048
  7. SIMVASTATIN [Concomitant]
     Indication: BLOOD CHOLESTEROL
     Dosage: 1 DF, EVERY 12 HOURS
     Route: 048
  8. CAPTOPRIL [Concomitant]
     Indication: BLOOD PRESSURE
     Dosage: 1 DF, EVERY 12 HOURS
     Route: 048

REACTIONS (13)
  - Cardiac arrest [Fatal]
  - Myocardial infarction [Fatal]
  - Asthenia [Fatal]
  - Chest pain [Fatal]
  - Dyspnoea [Fatal]
  - Hyperhidrosis [Fatal]
  - Coronary artery insufficiency [Fatal]
  - Lung disorder [Unknown]
  - Rhinorrhoea [Recovered/Resolved]
  - Nasal congestion [Recovered/Resolved]
  - Decreased appetite [Recovered/Resolved]
  - Diarrhoea [Recovered/Resolved]
  - Skin discolouration [Not Recovered/Not Resolved]
